FAERS Safety Report 10253096 (Version 1)
Quarter: 2014Q2

REPORT INFORMATION
  Report Type: Spontaneous
  Country: US (occurrence: None)
  Receive Date: 20140619
  Receipt Date: 20140619
  Transmission Date: 20141212
  Serious: Yes (Other)
  Sender: FDA-Public Use
  Company Number: None

PATIENT
  Age: 59 Year
  Sex: Male
  Weight: 114.76 kg

DRUGS (1)
  1. BYETTA [Suspect]
     Dosage: TAKEN FOR 11 YEARS
     Route: 058

REACTIONS (2)
  - Condition aggravated [None]
  - Bronchitis [None]
